FAERS Safety Report 4415429-5 (Version None)
Quarter: 2004Q2

REPORT INFORMATION
  Report Type: 
  Country: None (occurrence: None)
  Receive Date: 20040630
  Receipt Date: 20031201
  Transmission Date: 20050107
  Serious: Yes (Hospitalization, Other)
  Sender: FDA-Public Use
  Company Number: 2003111441

PATIENT
  Age: 22 Year
  Sex: Female

DRUGS (1)
  1. ZOLOFT [Suspect]
     Indication: ANXIETY
     Dosage: 200 MG (DAILY), ORAL
     Route: 048
     Dates: start: 20031008, end: 20031008

REACTIONS (4)
  - FATIGUE [None]
  - INTENTIONAL OVERDOSE [None]
  - NAUSEA [None]
  - SUICIDAL IDEATION [None]
